FAERS Safety Report 9144588 (Version 1)
Quarter: 2013Q1

REPORT INFORMATION
  Report Type: Spontaneous
  Country: US (occurrence: US)
  Receive Date: 20130306
  Receipt Date: 20130306
  Transmission Date: 20140127
  Serious: Yes (Hospitalization)
  Sender: FDA-Public Use
  Company Number: US-ROCHE-1195231

PATIENT
  Sex: Female

DRUGS (2)
  1. KLONOPIN [Suspect]
     Indication: ANXIETY
     Route: 065
  2. KLONOPIN [Suspect]
     Indication: BIPOLAR DISORDER

REACTIONS (6)
  - Anxiety [Unknown]
  - Dependence [Unknown]
  - Detoxification [Unknown]
  - Somatoform disorder [Unknown]
  - Drug withdrawal syndrome [Unknown]
  - Drug abuse [Unknown]
